FAERS Safety Report 21369916 (Version 1)
Quarter: 2022Q3

REPORT INFORMATION
  Report Type: Spontaneous
  Country: FR (occurrence: FR)
  Receive Date: 20220923
  Receipt Date: 20220923
  Transmission Date: 20221027
  Serious: Yes (Other)
  Sender: FDA-Public Use
  Company Number: FR-BRISTOL-MYERS SQUIBB COMPANY-2022-053382

PATIENT
  Age: 42 Year
  Sex: Male

DRUGS (2)
  1. ONUREG [Suspect]
     Active Substance: AZACITIDINE
     Indication: Product used for unknown indication
     Dosage: 14 DAY (28 DAYS TREATMENT CYCLE
     Route: 065
     Dates: start: 20210819
  2. ONUREG [Suspect]
     Active Substance: AZACITIDINE
     Dosage: RE-INTRODUCED ON 20-MAY-2022
     Route: 065
     Dates: start: 20220520

REACTIONS (3)
  - Neutropenia [Unknown]
  - White blood cell disorder [Unknown]
  - Bronchopulmonary aspergillosis [Unknown]

NARRATIVE: CASE EVENT DATE: 20220120
